FAERS Safety Report 5750906-6 (Version None)
Quarter: 2008Q2

REPORT INFORMATION
  Report Type: 
  Country: None (occurrence: None)
  Receive Date: 20080528
  Receipt Date: 20080519
  Transmission Date: 20081010
  Serious: Yes (Death)
  Sender: FDA-Public Use
  Company Number: DE-ROCHE-565372

PATIENT
  Sex: Female

DRUGS (3)
  1. INTERFERON ALFA [Suspect]
     Route: 065
  2. AVASTIN [Suspect]
     Dosage: TWICE AT AN INTERVAL OF 14 DAYS. 80 MG PER APPLICATION
     Route: 065
  3. MARCUMAR [Suspect]
     Indication: DRUG USE FOR UNKNOWN INDICATION
     Route: 065

REACTIONS (1)
  - DEATH [None]
